FAERS Safety Report 21913427 (Version 4)
Quarter: 2023Q2

REPORT INFORMATION
  Report Type: Report from Study
  Country: BR (occurrence: BR)
  Receive Date: 20230125
  Receipt Date: 20230629
  Transmission Date: 20230722
  Serious: Yes (Hospitalization, Other)
  Sender: FDA-Public Use
  Company Number: BR-002147023-NVSC2023BR013992

PATIENT

DRUGS (2)
  1. RUXOLITINIB [Suspect]
     Active Substance: RUXOLITINIB
     Indication: Essential thrombocythaemia
     Dosage: 20 MG, BID (TWICE A DAY) (DAILY) (START DATE- IT WILL BE 2 YEARS) (1 TABLET AT 9:00AM AND ANOTHER AT
     Route: 065
  2. RUXOLITINIB [Suspect]
     Active Substance: RUXOLITINIB
     Dosage: 40 MG, QD (20 MG, 2 TABLETS, EVERY 12 HOURS)
     Route: 048

REACTIONS (17)
  - Anaemia [Recovering/Resolving]
  - Bronchitis [Recovering/Resolving]
  - Pneumonia [Recovered/Resolved]
  - Splenomegaly [Not Recovered/Not Resolved]
  - Malaise [Unknown]
  - White blood cell count increased [Recovering/Resolving]
  - Illness [Unknown]
  - Product use in unapproved indication [Unknown]
  - Haemoglobin decreased [Recovering/Resolving]
  - Decreased immune responsiveness [Unknown]
  - Myelofibrosis [Unknown]
  - Pneumonia [Recovered/Resolved]
  - Lung disorder [Unknown]
  - Secretion discharge [Not Recovered/Not Resolved]
  - Sinusitis [Recovering/Resolving]
  - Fatigue [Recovering/Resolving]
  - Viral infection [Recovering/Resolving]

NARRATIVE: CASE EVENT DATE: 20221201
